FAERS Safety Report 14619663 (Version 1)
Quarter: 2018Q1

REPORT INFORMATION
  Report Type: Spontaneous
  Country: US (occurrence: US)
  Receive Date: 20180309
  Receipt Date: 20180309
  Transmission Date: 20180509
  Serious: Yes (Other)
  Sender: FDA-Public Use
  Company Number: None

PATIENT
  Age: 78 Year
  Sex: Female
  Weight: 63 kg

DRUGS (16)
  1. ACETYL CARNITINE [Concomitant]
  2. METOPROLOL. [Concomitant]
     Active Substance: METOPROLOL
  3. DICLOFENAC [Concomitant]
     Active Substance: DICLOFENAC
  4. VITAMINS [Concomitant]
     Active Substance: VITAMINS
  5. XARELTO [Concomitant]
     Active Substance: RIVAROXABAN
  6. VITAMIN B6 [Concomitant]
     Active Substance: PYRIDOXINE HYDROCHLORIDE
  7. COQ10 [Concomitant]
     Active Substance: UBIDECARENONE
  8. R-LIPOIC ACID [Concomitant]
  9. MINERALS [Concomitant]
     Active Substance: MINERALS
  10. VITAMIN E [Concomitant]
     Active Substance: .ALPHA.-TOCOPHEROL
  11. GABAPENTIN. [Concomitant]
     Active Substance: GABAPENTIN
  12. AMIODARONE 200 MG [Suspect]
     Active Substance: AMIODARONE
     Indication: ATRIAL FIBRILLATION
     Dosage: ?          QUANTITY:4 TABLET(S);?
     Route: 048
     Dates: start: 20180207, end: 20180219
  13. FISH OIL [Concomitant]
     Active Substance: FISH OIL
  14. ROSUVASTATIN. [Concomitant]
     Active Substance: ROSUVASTATIN
  15. CALCIUM CITRATE + D [Concomitant]
  16. VITAMIN D [Concomitant]
     Active Substance: CHOLECALCIFEROL

REACTIONS (7)
  - Tremor [None]
  - Fatigue [None]
  - Insomnia [None]
  - Feeling abnormal [None]
  - Heart rate decreased [None]
  - Gait disturbance [None]
  - Therapy change [None]

NARRATIVE: CASE EVENT DATE: 20180207
